FAERS Safety Report 5496444-X (Version None)
Quarter: 2007Q4

REPORT INFORMATION
  Report Type: 
  Country: None (occurrence: None)
  Receive Date: 20071023
  Receipt Date: 20071023
  Transmission Date: 20080405
  Serious: Yes (Other)
  Sender: FDA-Public Use
  Company Number: None

PATIENT
  Sex: Male
  Weight: 56 kg

DRUGS (1)
  1. VANCOMYCIN [Suspect]
     Indication: BACTERAEMIA
     Dosage: (1GM) 1000MG VANCOMYCIN X1
     Dates: start: 20070824

REACTIONS (2)
  - INFUSION RELATED REACTION [None]
  - PRURITUS GENERALISED [None]
